FAERS Safety Report 6879780-1 (Version None)
Quarter: 2010Q3

REPORT INFORMATION
  Report Type: 
  Country: None (occurrence: None)
  Receive Date: 20100728
  Receipt Date: 20100714
  Transmission Date: 20110219
  Serious: Yes (Hospitalization, Other)
  Sender: FDA-Public Use
  Company Number: US-ELI_LILLY_AND_COMPANY-US201002002054

PATIENT
  Sex: Female

DRUGS (2)
  1. FORTEO [Suspect]
     Indication: OSTEOPOROSIS
     Dosage: 20 UG, DAILY (1/D)
     Route: 058
     Dates: start: 20090401
  2. POLYGAM S/D [Concomitant]
     Dosage: UNK, MONTHLY (1/M)
     Route: 042

REACTIONS (7)
  - ANKLE FRACTURE [None]
  - CARDIAC DISORDER [None]
  - FALL [None]
  - FLUID RETENTION [None]
  - LUNG DISORDER [None]
  - PNEUMONIA [None]
  - RENAL DISORDER [None]
